FAERS Safety Report 25192911 (Version 1)
Quarter: 2025Q2

REPORT INFORMATION
  Report Type: Report from Study
  Country: CA (occurrence: CA)
  Receive Date: 20250414
  Receipt Date: 20250414
  Transmission Date: 20250716
  Serious: Yes (Hospitalization, Other)
  Sender: ABBVIE
  Company Number: CA-ABBVIE-6204746

PATIENT
  Sex: Female

DRUGS (3)
  1. RINVOQ [Suspect]
     Active Substance: UPADACITINIB
     Indication: Crohn^s disease
     Route: 048
  2. METHOTREXATE [Suspect]
     Active Substance: METHOTREXATE
     Indication: Herpes zoster
     Route: 065
  3. CLINDAMYCIN [Suspect]
     Active Substance: CLINDAMYCIN
     Indication: Product used for unknown indication
     Route: 065

REACTIONS (12)
  - Gastrointestinal haemorrhage [Unknown]
  - Nasopharyngitis [Unknown]
  - Thinking abnormal [Unknown]
  - Anaemia [Unknown]
  - Tooth fracture [Unknown]
  - Cough [Unknown]
  - Allergic sinusitis [Unknown]
  - Allergic respiratory symptom [Unknown]
  - Diarrhoea [Recovered/Resolved]
  - Ulcer [Recovering/Resolving]
  - Flatulence [Unknown]
  - Vomiting [Unknown]

NARRATIVE: CASE EVENT DATE: 20250301
